FAERS Safety Report 4694120-4 (Version None)
Quarter: 2005Q2

REPORT INFORMATION
  Report Type: 
  Country: None (occurrence: None)
  Receive Date: 20050616
  Receipt Date: 20050616
  Transmission Date: 20051028
  Serious: Yes (Other)
  Sender: FDA-Public Use
  Company Number: None

PATIENT
  Sex: Male
  Weight: 91.8 kg

DRUGS (2)
  1. CISPLATIN [Suspect]
     Indication: NEOPLASM MALIGNANT
     Dosage: 100 MG/M2 ON DAYS 1, 22 AND 43
     Dates: start: 20050519
  2. RADIATION [Suspect]
     Dosage: 70 GY / 35 FRACTIONS/7 WEEKS

REACTIONS (2)
  - RASH [None]
  - SYNCOPE [None]
